FAERS Safety Report 13192293 (Version 1)
Quarter: 2017Q1

REPORT INFORMATION
  Report Type: Spontaneous
  Country: US (occurrence: US)
  Receive Date: 20170207
  Receipt Date: 20170207
  Transmission Date: 20170428
  Serious: No
  Sender: FDA-Public Use
  Company Number: PHEH2017US003660

PATIENT
  Sex: Female

DRUGS (1)
  1. COSENTYX [Suspect]
     Active Substance: SECUKINUMAB
     Indication: PRODUCT USED FOR UNKNOWN INDICATION
     Dosage: 150 MG, QW (ONCE A WEEK FOR 5 WEEKS AND AFTER THAT WILL TAKE A 150MG INJECTION EVERY 28 DAYS)
     Route: 065

REACTIONS (5)
  - Abdominal discomfort [Unknown]
  - Ageusia [Unknown]
  - Dysgeusia [Unknown]
  - Drug effect delayed [Unknown]
  - Pain [Unknown]
